FAERS Safety Report 15323848 (Version 1)
Quarter: 2018Q3

REPORT INFORMATION
  Report Type: Spontaneous
  Country: BE (occurrence: BE)
  Receive Date: 20180828
  Receipt Date: 20180828
  Transmission Date: 20181010
  Serious: Yes (Hospitalization)
  Sender: FDA-Public Use
  Company Number: BE-SUN PHARMACEUTICAL INDUSTRIES LTD-2018RR-182384

PATIENT

DRUGS (9)
  1. MS CONTIN [Concomitant]
     Active Substance: MORPHINE SULFATE
     Indication: PAIN
     Route: 048
  2. GEMCITABINE [Suspect]
     Active Substance: GEMCITABINE\GEMCITABINE HYDROCHLORIDE
     Indication: METASTATIC NEOPLASM
     Dosage: 1300 MG J1 ? J8  UNE FOIS TOUTES LES 3 SEMAINES. RECU UNE SEULE DOSE
     Route: 042
     Dates: start: 20120904, end: 20120904
  3. MS DIRECT [Concomitant]
     Active Substance: MORPHINE SULFATE
     Indication: PAIN
     Dosage: SI BESOIN ()
     Route: 048
  4. CISPLATIN. [Concomitant]
     Active Substance: CISPLATIN
     Indication: METASTATIC NEOPLASM
     Route: 042
     Dates: start: 20120818, end: 20120904
  5. XGEVA [Concomitant]
     Active Substance: DENOSUMAB
     Indication: PRODUCT USED FOR UNKNOWN INDICATION
     Route: 065
     Dates: start: 20120813
  6. CISPLATIN. [Concomitant]
     Active Substance: CISPLATIN
     Indication: METASTATIC NEOPLASM
     Route: 042
     Dates: start: 20120818, end: 20120904
  7. EUTHYROX [Concomitant]
     Active Substance: LEVOTHYROXINE SODIUM
     Indication: HYPOTHYROIDISM
     Route: 065
  8. CORTISONE [Concomitant]
     Active Substance: CORTISONE\HYDROCORTISONE
     Indication: PAIN
     Route: 065
  9. CALCIUM + VITAMINE D [Concomitant]
     Indication: OSTEOPOROSIS
     Dosage: ()
     Route: 048

REACTIONS (5)
  - Sense of oppression [Recovered/Resolved]
  - Pruritus [Recovered/Resolved]
  - Rash [Recovered/Resolved]
  - Paraesthesia [Recovered/Resolved]
  - Chest pain [Recovered/Resolved]

NARRATIVE: CASE EVENT DATE: 20120904
